FAERS Safety Report 6206442-6 (Version None)
Quarter: 2009Q2

REPORT INFORMATION
  Report Type: 
  Country: None (occurrence: None)
  Receive Date: 20090528
  Receipt Date: 20090526
  Transmission Date: 20091009
  Serious: Yes (Death)
  Sender: FDA-Public Use
  Company Number: PHEH2009US05314

PATIENT
  Sex: Male

DRUGS (1)
  1. ZOMETA [Suspect]
     Indication: NON-HODGKIN'S LYMPHOMA
     Dosage: 4 MG, UNK
     Route: 042
     Dates: start: 20081027, end: 20081209

REACTIONS (1)
  - DEATH [None]
